FAERS Safety Report 19093733 (Version 8)
Quarter: 2022Q1

REPORT INFORMATION
  Report Type: Report from Study
  Country: KR (occurrence: KR)
  Receive Date: 20210405
  Receipt Date: 20220103
  Transmission Date: 20220423
  Serious: Yes (Other)
  Sender: FDA-Public Use
  Company Number: KR-TAKEDA-2021TUS016072

PATIENT
  Sex: Male

DRUGS (11)
  1. BRIGATINIB [Suspect]
     Active Substance: BRIGATINIB
     Indication: Non-small cell lung cancer
     Dosage: 90 MILLIGRAM, QD
     Route: 065
     Dates: start: 20201110, end: 20201116
  2. BRIGATINIB [Suspect]
     Active Substance: BRIGATINIB
     Dosage: 180 MILLIGRAM, QD
     Route: 065
     Dates: start: 20201117, end: 20210801
  3. BRIGATINIB [Suspect]
     Active Substance: BRIGATINIB
     Dosage: 120 MILLIGRAM, QD
     Route: 065
     Dates: start: 20210802, end: 20211020
  4. BRIGATINIB [Suspect]
     Active Substance: BRIGATINIB
     Dosage: 120 MILLIGRAM, QD
     Route: 065
     Dates: start: 20211029
  5. MOSAPRIDE CITRATE [Concomitant]
     Active Substance: MOSAPRIDE CITRATE
     Indication: Prophylaxis
     Dosage: 5 MILLIGRAM
     Route: 048
     Dates: start: 20201204, end: 20210128
  6. DAEWOONG ROSUVASTATIN [Concomitant]
     Indication: Type I hyperlipidaemia
     Dosage: 10 MILLIGRAM
     Route: 048
     Dates: start: 20201110, end: 20210228
  7. POLYBUTINE [Concomitant]
     Indication: Prophylaxis
     Dosage: 300 MILLIGRAM
     Route: 048
     Dates: start: 20201110, end: 20201213
  8. NOVASCAN [Concomitant]
     Indication: Hypertension
     Dosage: UNK
     Route: 048
     Dates: start: 20201218
  9. LANSOPRAZOLE [Concomitant]
     Active Substance: LANSOPRAZOLE
     Indication: Gastritis prophylaxis
     Dosage: UNK
     Route: 048
     Dates: start: 20201215
  10. FENOFIBRATE [Concomitant]
     Active Substance: FENOFIBRATE
     Indication: Blood lactate dehydrogenase increased
     Dosage: UNK
     Route: 048
     Dates: start: 20210712
  11. CILOSTAZOL [Concomitant]
     Active Substance: CILOSTAZOL
     Indication: Blood lactate dehydrogenase increased
     Dosage: UNK
     Route: 065
     Dates: start: 20210712

REACTIONS (8)
  - Epididymitis [Recovered/Resolved]
  - Sensation of foreign body [Recovered/Resolved]
  - Blood creatine phosphokinase increased [Recovering/Resolving]
  - Pruritus [Recovered/Resolved]
  - Diarrhoea [Recovered/Resolved]
  - Blood lactate dehydrogenase increased [Recovering/Resolving]
  - White blood cell count increased [Recovered/Resolved]
  - Hypertension [Recovering/Resolving]

NARRATIVE: CASE EVENT DATE: 20201116
